FAERS Safety Report 8758932 (Version 2)
Quarter: 2012Q4

REPORT INFORMATION
  Report Type: Report from Study
  Country: GB (occurrence: GB)
  Receive Date: 20120829
  Receipt Date: 20120830
  Transmission Date: 20130627
  Serious: Yes (Hospitalization)
  Sender: FDA-Public Use
  Company Number: GB-JNJFOC-20120811110

PATIENT
  Age: 62 Year
  Sex: Female
  Weight: 85 kg

DRUGS (14)
  1. STELARA [Suspect]
     Indication: PSORIASIS
     Route: 058
     Dates: start: 20110613
  2. LOSEC [Concomitant]
     Route: 065
     Dates: start: 20070816
  3. MULTIVITAMINS [Concomitant]
     Route: 065
     Dates: start: 20090309
  4. ASPIRIN [Concomitant]
     Route: 065
     Dates: start: 20100625
  5. STRONTIUM RANELATE [Concomitant]
     Route: 065
     Dates: start: 20071113
  6. TILDIEM [Concomitant]
     Route: 065
     Dates: start: 20100827
  7. VENTOLIN [Concomitant]
     Route: 065
     Dates: start: 19990823
  8. 50/50 CREAM [Concomitant]
     Route: 065
     Dates: start: 20030901
  9. METFORMIN [Concomitant]
     Route: 065
     Dates: start: 20110110
  10. GLICLAZIDE [Concomitant]
     Route: 065
     Dates: start: 20110110
  11. DERMOVATE [Concomitant]
     Route: 065
     Dates: start: 20110208
  12. ONDANSETRON [Concomitant]
     Route: 065
     Dates: start: 20110224
  13. MEBEVERINE [Concomitant]
     Route: 065
     Dates: start: 20110203
  14. FUMARIC ACID [Concomitant]
     Route: 065
     Dates: start: 20110201

REACTIONS (1)
  - Pneumonia [Recovered/Resolved]
